FAERS Safety Report 6571235-7 (Version None)
Quarter: 2010Q1

REPORT INFORMATION
  Report Type: 
  Country: None (occurrence: None)
  Receive Date: 20100129
  Receipt Date: 20100129
  Transmission Date: 20100710
  Serious: Yes (Life-Threatening, Hospitalization)
  Sender: FDA-Public Use
  Company Number: DE-PLUSION-2009-0482

PATIENT
  Age: 57 Year
  Sex: Male
  Weight: 110 kg

DRUGS (1)
  1. ICG-PULSION [Suspect]
     Indication: INVESTIGATION
     Dosage: 50 MG MILLIGRAM(S), 1X, INTRAVENOUS (NOT OTHERWISE
     Route: 042

REACTIONS (1)
  - ANAPHYLACTIC SHOCK [None]
